FAERS Safety Report 4977389-8 (Version None)
Quarter: 2006Q2

REPORT INFORMATION
  Report Type: 
  Country: None (occurrence: None)
  Receive Date: 20060413
  Receipt Date: 20060331
  Transmission Date: 20061013
  Serious: Yes (Life-Threatening, Hospitalization)
  Sender: FDA-Public Use
  Company Number: DEU-2006-0002017

PATIENT
  Age: 51 Year
  Sex: Female
  Weight: 71 kg

DRUGS (6)
  1. OXYCODONE HCL [Suspect]
     Indication: BACK PAIN
     Dosage: 20 MG, TID, ORAL
     Route: 048
     Dates: start: 20030101
  2. ANTIDEPRESSANTS (ANTIDEPRESSANTS) CAPSULE [Suspect]
     Indication: DEPRESSION
     Dosage: 60 MG, ORAL
     Route: 048
     Dates: start: 20050901
  3. LEVOTHYROXINE SODIUM [Concomitant]
     Indication: DRUG USE FOR UNKNOWN INDICATION
     Dosage: 100 MCG, AM, ORAL
     Route: 048
  4. BERODURAL (IPRATROPIUM BROMIDE, FENOTEROL HYDROBROMIDE) [Concomitant]
  5. PIPAMPERONE (PIPAMPERONE) [Concomitant]
  6. HYDROCHLOROTHIAZIDE [Concomitant]

REACTIONS (3)
  - DRUG INTERACTION [None]
  - HEADACHE [None]
  - HYPERTENSIVE CRISIS [None]
